FAERS Safety Report 8904603 (Version 1)
Quarter: 2012Q4

REPORT INFORMATION
  Report Type: 
  Country: US (occurrence: US)
  Receive Date: 20121112
  Receipt Date: 20121112
  Transmission Date: 20130627
  Serious: No
  Sender: FDA-Public Use
  Company Number: US-TEVA-369558USA

PATIENT
  Sex: Male
  Weight: 53.57 kg

DRUGS (1)
  1. ACTIQ [Suspect]
     Indication: GASTROINTESTINAL PAIN
     Route: 048
     Dates: start: 2012

REACTIONS (2)
  - Diarrhoea [Not Recovered/Not Resolved]
  - Off label use [Unknown]
